FAERS Safety Report 21268033 (Version 4)
Quarter: 2022Q4

REPORT INFORMATION
  Report Type: Report from Study
  Country: DE (occurrence: DE)
  Receive Date: 20220829
  Receipt Date: 20221114
  Transmission Date: 20230113
  Serious: Yes (Death, Life-Threatening, Hospitalization, Disabling, Other)
  Sender: FDA-Public Use
  Company Number: DE-BRISTOL-MYERS SQUIBB COMPANY-2022-094328

PATIENT
  Age: 70 Year
  Sex: Male
  Weight: 67 kg

DRUGS (11)
  1. PLACEBO [Suspect]
     Active Substance: UNSPECIFIED INGREDIENT
     Indication: Prostate cancer
     Dosage: PRIOR TO THE ONSET OF THE EVENT, THE PATIENT RECEIVED HIS MOST RECENT DOSE OF BLINDED NIVOLUMAB/PLAC
     Route: 042
     Dates: start: 20220609, end: 20220811
  2. DOCETAXEL [Suspect]
     Active Substance: DOCETAXEL
     Indication: Prostate cancer
     Dosage: PRIOR TO THE ONSET OF THE EVENT, THE PATIENT RECEIVED HIS MOST RECENT DOSE OF DOCETAXEL ON 11-AUG-20
     Route: 065
     Dates: start: 20220609, end: 20220811
  3. PREDNISONE [Concomitant]
     Active Substance: PREDNISONE
     Indication: Prostate cancer
     Dosage: PRIOR TO THE ONSET OF THE EVENT, THE PATIENT RECEIVED HIS MOST RECENT DOSE OF PREDNISONE ON 20-JUL-2
     Route: 065
     Dates: start: 20220609, end: 20220720
  4. LOSARTAN POTASSIUM [Concomitant]
     Active Substance: LOSARTAN POTASSIUM
     Indication: Product used for unknown indication
     Route: 048
     Dates: start: 201710
  5. AMLODIPINE [Concomitant]
     Active Substance: AMLODIPINE BESYLATE
     Indication: Product used for unknown indication
     Route: 048
     Dates: start: 201710
  6. DENOSUMAB [Concomitant]
     Active Substance: DENOSUMAB
     Indication: Product used for unknown indication
     Route: 058
     Dates: start: 202002
  7. METRONIDAZOLE [Concomitant]
     Active Substance: METRONIDAZOLE
     Indication: Diverticulitis
     Route: 048
     Dates: start: 20220811
  8. CEFUROXIME SODIUM [Concomitant]
     Active Substance: CEFUROXIME SODIUM
     Indication: Diverticulitis
     Route: 048
     Dates: start: 20220811
  9. DEXAMETHASONE [Concomitant]
     Active Substance: DEXAMETHASONE
     Indication: Product used for unknown indication
     Route: 048
     Dates: start: 20220810, end: 20220811
  10. ACETAMINOPHEN [Concomitant]
     Active Substance: ACETAMINOPHEN
     Indication: Product used for unknown indication
     Route: 048
     Dates: start: 20220811, end: 20220811
  11. CETIRIZINE HYDROCHLORIDE [Concomitant]
     Active Substance: CETIRIZINE HYDROCHLORIDE
     Indication: Product used for unknown indication
     Route: 048
     Dates: start: 20220811, end: 20220811

REACTIONS (2)
  - Large intestine perforation [Recovering/Resolving]
  - Respiratory failure [Fatal]

NARRATIVE: CASE EVENT DATE: 20220819
